FAERS Safety Report 12177199 (Version 1)
Quarter: 2016Q1

REPORT INFORMATION
  Report Type: Spontaneous
  Country: ZA (occurrence: ZA)
  Receive Date: 20160314
  Receipt Date: 20160314
  Transmission Date: 20160526
  Serious: Yes (Death)
  Sender: FDA-Public Use
  Company Number: PHHY2016ZA033662

PATIENT
  Age: 36 Year
  Sex: Female

DRUGS (2)
  1. XELODA [Suspect]
     Active Substance: CAPECITABINE
     Indication: BREAST CANCER
     Dosage: UNK
     Route: 065
     Dates: start: 201602
  2. TYKERB [Suspect]
     Active Substance: LAPATINIB DITOSYLATE
     Indication: BREAST CANCER
     Dosage: UNK (3 WEEKS)
     Route: 065
     Dates: start: 201602

REACTIONS (2)
  - Pulmonary embolism [Fatal]
  - Pleural effusion [Unknown]

NARRATIVE: CASE EVENT DATE: 201602
